FAERS Safety Report 9664911 (Version 1)
Quarter: 2013Q4

REPORT INFORMATION
  Report Type: Spontaneous
  Country: GB (occurrence: None)
  Receive Date: 20131031
  Receipt Date: 20131031
  Transmission Date: 20140711
  Serious: Yes (Death, Hospitalization)
  Sender: FDA-Public Use
  Company Number: 2013-003399

PATIENT
  Age: 76 Year
  Sex: Female
  Weight: 57 kg

DRUGS (6)
  1. DORYX [Suspect]
     Route: 048
     Dates: start: 20130305, end: 20130306
  2. BISOPROLOL (BISOPROLOL) [Concomitant]
  3. IPRATROPIUM [Concomitant]
  4. SALBUTAMOL (SALBUTAMOL) [Concomitant]
  5. OMEPRAZOLE (OMERPRAZOLE) [Concomitant]
  6. FOLIC ACID (FOLIC ACID) [Concomitant]

REACTIONS (3)
  - Hepatic function abnormal [None]
  - Renal failure [None]
  - Jaundice [None]
